FAERS Safety Report 25644521 (Version 1)
Quarter: 2025Q3

REPORT INFORMATION
  Report Type: Report from Study
  Country: US (occurrence: US)
  Receive Date: 20250805
  Receipt Date: 20250805
  Transmission Date: 20251021
  Serious: Yes (Hospitalization)
  Sender: UCB
  Company Number: US-UCBSA-2025047184

PATIENT
  Age: 74 Year
  Sex: Female

DRUGS (1)
  1. CERTOLIZUMAB PEGOL [Suspect]
     Active Substance: CERTOLIZUMAB PEGOL
     Indication: Crohn^s disease
     Dosage: 400 MILLIGRAM, EV 4 WEEKS FOR 20 YEARS
     Route: 058
     Dates: start: 2005

REACTIONS (2)
  - Urinary tract infection [Not Recovered/Not Resolved]
  - Oesophageal obstruction [Not Recovered/Not Resolved]

NARRATIVE: CASE EVENT DATE: 20250721
